FAERS Safety Report 19193481 (Version 4)
Quarter: 2022Q2

REPORT INFORMATION
  Report Type: Spontaneous
  Country: JP (occurrence: JP)
  Receive Date: 20210428
  Receipt Date: 20220608
  Transmission Date: 20220721
  Serious: Yes (Hospitalization)
  Sender: FDA-Public Use
  Company Number: JP-JNJJAKJPN-202128296

PATIENT
  Age: 81 Year
  Sex: Male
  Weight: 45.1 kg

DRUGS (6)
  1. ERLEADA [Interacting]
     Active Substance: APALUTAMIDE
     Indication: Prostate cancer
     Dosage: DOSE UNKNOWN
     Route: 048
     Dates: start: 202102
  2. METILDIGOXIN [Interacting]
     Active Substance: METILDIGOXIN
     Indication: Tachycardia
     Dosage: DOSE UNKNOWN
     Route: 048
     Dates: start: 201803
  3. METILDIGOXIN [Interacting]
     Active Substance: METILDIGOXIN
     Dosage: DOSE UNKNOWN
     Route: 048
     Dates: start: 20210212, end: 20210408
  4. ELIQUIS [Concomitant]
     Active Substance: APIXABAN
     Dosage: DOSE UNKNOWN
     Route: 065
  5. CARVEDILOL [Concomitant]
     Active Substance: CARVEDILOL
     Indication: Tachycardia
     Dosage: DOSE UNKNOWN
     Route: 065
  6. CARVEDILOL [Concomitant]
     Active Substance: CARVEDILOL
     Indication: Tachycardia
     Dosage: DOSE UNKNOWN, INCREASED DOSE
     Route: 065

REACTIONS (3)
  - Hospitalisation [Unknown]
  - Cardioactive drug level increased [Unknown]
  - Drug interaction [Unknown]

NARRATIVE: CASE EVENT DATE: 20210101
